FAERS Safety Report 8968340 (Version 1)
Quarter: 2012Q4

REPORT INFORMATION
  Report Type: 
  Country: US (occurrence: US)
  Receive Date: 20121218
  Receipt Date: 20121218
  Transmission Date: 20130627
  Serious: Yes (Other)
  Sender: FDA-Public Use
  Company Number: US-BAYER-2012-131168

PATIENT
  Age: 45 Year
  Sex: Female

DRUGS (9)
  1. YAZ [Suspect]
  2. IBUPROFEN [Concomitant]
     Indication: UNILATERAL LEG PAIN
  3. DICLOXACILLIN [Concomitant]
     Dosage: 500 mg, 4 x daily
     Route: 048
     Dates: start: 20110411
  4. CATAFLAM [Concomitant]
     Dosage: 75 mg, TID
  5. VICODIN [Concomitant]
     Dosage: 5/500 mg every 6-8 hours as needed
  6. NECON [Concomitant]
  7. NORTREL [Concomitant]
  8. ORTHO-NOVUM [Concomitant]
  9. MIRENA [Concomitant]

REACTIONS (2)
  - Deep vein thrombosis [None]
  - Thrombophlebitis superficial [None]
